FAERS Safety Report 6597774-0 (Version None)
Quarter: 2010Q1

REPORT INFORMATION
  Report Type: 
  Country: None (occurrence: None)
  Receive Date: 20100216
  Receipt Date: 20100211
  Transmission Date: 20100710
  Serious: Yes (Other)
  Sender: FDA-Public Use
  Company Number: 2010SP006504

PATIENT
  Age: 44 Year
  Sex: Female

DRUGS (2)
  1. DESLORATADINE AND PSEUDOEPHEDRINE SULFATE [Suspect]
     Indication: RHINITIS
     Dosage: 2 DF;QD;PO
     Route: 048
     Dates: start: 20100126, end: 20100127
  2. OFTAN AKVAKOL (CHLORAPHENICOL) (NO PREF. NAME) [Suspect]
     Indication: CONJUNCTIVITIS
     Dosage: 4 GTT;QD
     Dates: start: 20100126, end: 20100127

REACTIONS (5)
  - ANGIOEDEMA [None]
  - ERYTHEMA [None]
  - FEELING HOT [None]
  - PRURITUS [None]
  - URTICARIA [None]
